FAERS Safety Report 5598363-7 (Version None)
Quarter: 2008Q1

REPORT INFORMATION
  Report Type: 
  Country: None (occurrence: None)
  Receive Date: 20080122
  Receipt Date: 20080111
  Transmission Date: 20080703
  Serious: Yes (Death, Hospitalization)
  Sender: FDA-Public Use
  Company Number: JP-AVENTIS-200810025JP

PATIENT
  Age: 68 Year
  Sex: Male
  Weight: 47.2 kg

DRUGS (7)
  1. TAXOTERE [Suspect]
     Route: 042
     Dates: start: 20071109, end: 20071109
  2. TAXOTERE [Suspect]
     Route: 042
     Dates: start: 20071211, end: 20071211
  3. SPIRIVA [Concomitant]
     Route: 055
     Dates: start: 20070201, end: 20071226
  4. KYTRIL                             /01178101/ [Concomitant]
     Indication: PREMEDICATION
     Route: 042
     Dates: start: 20071109, end: 20071109
  5. KYTRIL                             /01178101/ [Concomitant]
     Route: 042
     Dates: start: 20071211, end: 20071211
  6. DECADRON [Concomitant]
     Indication: PREMEDICATION
  7. RADIOTHERAPY [Concomitant]

REACTIONS (1)
  - INTERSTITIAL LUNG DISEASE [None]
